FAERS Safety Report 22071322 (Version 2)
Quarter: 2023Q1

REPORT INFORMATION
  Report Type: Spontaneous
  Country: AT (occurrence: AT)
  Receive Date: 20230307
  Receipt Date: 20230317
  Transmission Date: 20230417
  Serious: Yes (Other)
  Sender: FDA-Public Use
  Company Number: AT-MMM-OC8R1XBL

PATIENT
  Age: 46 Year
  Sex: Female

DRUGS (2)
  1. TRODELVY [Suspect]
     Active Substance: SACITUZUMAB GOVITECAN-HZIY
     Indication: Product used for unknown indication
     Dosage: UNK
     Route: 065
     Dates: start: 202201, end: 202212
  2. TRODELVY [Suspect]
     Active Substance: SACITUZUMAB GOVITECAN-HZIY
     Dosage: UNK
     Route: 065
     Dates: start: 202301

REACTIONS (4)
  - Disease progression [Unknown]
  - Neutropenia [Unknown]
  - Metastases to central nervous system [Unknown]
  - Epilepsy [Unknown]

NARRATIVE: CASE EVENT DATE: 20220101
